FAERS Safety Report 4965445-X (Version None)
Quarter: 2006Q1

REPORT INFORMATION
  Report Type: 
  Country: None (occurrence: None)
  Receive Date: 20060201
  Receipt Date: 20051228
  Transmission Date: 20060701
  Serious: No
  Sender: FDA-Public Use
  Company Number: 2005PV06306

PATIENT
  Age: 67 Year
  Sex: Female
  Weight: 97.977 kg

DRUGS (5)
  1. BYETTA [Suspect]
     Indication: DIABETES MELLITUS NON-INSULIN-DEPENDENT
     Dosage: SEE IMAGE
     Route: 058
     Dates: start: 20051118, end: 20051217
  2. BYETTA [Suspect]
     Indication: DIABETES MELLITUS NON-INSULIN-DEPENDENT
     Dosage: SEE IMAGE
     Route: 058
     Dates: start: 20051218
  3. METFORMIN [Concomitant]
  4. NEURONTIN [Concomitant]
  5. ASCORBIC ACID [Concomitant]

REACTIONS (8)
  - CHILLS [None]
  - DIARRHOEA [None]
  - HEADACHE [None]
  - NASOPHARYNGITIS [None]
  - PHARYNGOLARYNGEAL PAIN [None]
  - PYREXIA [None]
  - SINUSITIS [None]
  - WEIGHT DECREASED [None]
